FAERS Safety Report 6698388-4 (Version None)
Quarter: 2010Q2

REPORT INFORMATION
  Report Type: 
  Country: None (occurrence: None)
  Receive Date: 20100427
  Receipt Date: 20100422
  Transmission Date: 20101027
  Serious: Yes (Death, Hospitalization)
  Sender: FDA-Public Use
  Company Number: UY-ROCHE-684883

PATIENT
  Sex: Female
  Weight: 70 kg

DRUGS (5)
  1. TRASTUZUMAB [Suspect]
     Dosage: LAST DOSE PRIOR TO SAE: 27 JANUARY 2010, THERAPY MAINTAINED AT THE TIME OF DEATH
     Route: 042
     Dates: start: 20100127
  2. DOCETAXEL [Suspect]
     Dosage: LAST DOSE: 28 JANUARY 2010, FORM: MG/M2 OF 80 MG,THERAPY WAS MAINTAINED AT THE TIME OF DEATH
     Route: 042
     Dates: start: 20100128
  3. RANITIDINE [Concomitant]
     Dates: start: 20100203, end: 20100304
  4. VALSARTAN [Concomitant]
  5. THYROID HORMONE [Concomitant]

REACTIONS (2)
  - PNEUMONIA [None]
  - THROMBOCYTOPENIA [None]
